FAERS Safety Report 6852326-X (Version None)
Quarter: 2010Q3

REPORT INFORMATION
  Report Type: 
  Country: None (occurrence: None)
  Receive Date: 20100717
  Receipt Date: 20080116
  Transmission Date: 20110219
  Serious: No
  Sender: FDA-Public Use
  Company Number: US-PFIZER INC-2007095485

PATIENT
  Sex: Female
  Weight: 54.5 kg

DRUGS (6)
  1. CHANTIX [Suspect]
     Indication: SMOKING CESSATION THERAPY
     Dates: start: 20071001
  2. KLONOPIN [Concomitant]
     Indication: ANXIETY
  3. SERETIDE [Concomitant]
     Indication: CHRONIC OBSTRUCTIVE PULMONARY DISEASE
  4. SERETIDE [Concomitant]
     Indication: EMPHYSEMA
  5. WELLBUTRIN [Concomitant]
  6. TUMS [Concomitant]

REACTIONS (6)
  - ANXIETY [None]
  - DRY THROAT [None]
  - FEELING ABNORMAL [None]
  - HEADACHE [None]
  - MALAISE [None]
  - TERMINAL INSOMNIA [None]
